FAERS Safety Report 8256691-0 (Version None)
Quarter: 2012Q2

REPORT INFORMATION
  Report Type: 
  Country: None (occurrence: None)
  Receive Date: 20120403
  Receipt Date: 20120327
  Transmission Date: 20120825
  Serious: Yes (Other)
  Sender: FDA-Public Use
  Company Number: US-JNJFOC-20120307399

PATIENT
  Sex: Female
  Weight: 54.43 kg

DRUGS (2)
  1. TOPAMAX [Suspect]
     Indication: EPILEPSY
     Route: 048
     Dates: start: 20020101
  2. TOPAMAX [Suspect]
     Dosage: 500 MG DOSE: 200 MG IN AM AND 300 MG IN THE EVENING
     Route: 048

REACTIONS (4)
  - CONVULSION [None]
  - CONTUSION [None]
  - INJURY [None]
  - THERAPY CESSATION [None]
